FAERS Safety Report 10997240 (Version 4)
Quarter: 2015Q2

REPORT INFORMATION
  Report Type: Report from Study
  Country: UY (occurrence: UY)
  Receive Date: 20150408
  Receipt Date: 20150518
  Transmission Date: 20150821
  Serious: Yes (Hospitalization)
  Sender: FDA-Public Use
  Company Number: UY-ROCHE-1546275

PATIENT
  Sex: Female

DRUGS (1)
  1. XELODA [Suspect]
     Active Substance: CAPECITABINE
     Indication: GASTRIC CANCER
     Route: 048
     Dates: start: 2014

REACTIONS (9)
  - Decreased appetite [Unknown]
  - Paraesthesia [Unknown]
  - Nausea [Unknown]
  - Inflammation [Unknown]
  - Vomiting [Unknown]
  - Cerebral infarction [Unknown]
  - Hypertension [Unknown]
  - Palmar-plantar erythrodysaesthesia syndrome [Unknown]
  - Confusional state [Not Recovered/Not Resolved]
